FAERS Safety Report 20763069 (Version 1)
Quarter: 2022Q2

REPORT INFORMATION
  Report Type: Spontaneous
  Country: US (occurrence: US)
  Receive Date: 20220428
  Receipt Date: 20220428
  Transmission Date: 20220721
  Serious: No
  Sender: FDA-Public Use
  Company Number: US-PFIZER INC-202101828545

PATIENT
  Age: 54 Year
  Sex: Female

DRUGS (7)
  1. XELJANZ XR [Suspect]
     Active Substance: TOFACITINIB CITRATE
     Dosage: 11 MG, ALTERNATE DAY (TAKING 1 TAB EVERY OTHER DAY FOR 6 DAYS)
     Route: 048
     Dates: start: 201912
  2. PREDNISONE [Concomitant]
     Active Substance: PREDNISONE
  3. LYRICA [Concomitant]
     Active Substance: PREGABALIN
  4. HYDROXYCHLOROQUINE [Concomitant]
     Active Substance: HYDROXYCHLOROQUINE
  5. ERGOCALCIFEROL [Concomitant]
     Active Substance: ERGOCALCIFEROL
  6. DULOXETINE [Concomitant]
     Active Substance: DULOXETINE
  7. ATENOLOL [Concomitant]
     Active Substance: ATENOLOL

REACTIONS (2)
  - Off label use [Unknown]
  - Headache [Recovered/Resolved]
